FAERS Safety Report 24061700 (Version 4)
Quarter: 2024Q3

REPORT INFORMATION
  Report Type: Spontaneous
  Country: FR (occurrence: FR)
  Receive Date: 20240708
  Receipt Date: 20240902
  Transmission Date: 20241017
  Serious: Yes (Death, Other)
  Sender: TAKEDA
  Company Number: FR-CLINIGEN-FR-CLI-2024-010351

PATIENT
  Age: 59 Year
  Sex: Female

DRUGS (6)
  1. MARIBAVIR [Suspect]
     Active Substance: MARIBAVIR
     Indication: Cytomegalovirus infection
     Dosage: 800 MILLIGRAM, QD
     Route: 065
  2. MARIBAVIR [Suspect]
     Active Substance: MARIBAVIR
     Indication: Encephalitis
     Dosage: 400 MILLIGRAM, BID
     Route: 065
  3. FOSCARNET SODIUM [Suspect]
     Active Substance: FOSCARNET SODIUM
     Indication: Encephalitis
     Dosage: UNK
     Route: 042
  4. FOSCARNET SODIUM [Suspect]
     Active Substance: FOSCARNET SODIUM
     Indication: Cytomegalovirus infection
  5. VALGANCICLOVIR [Suspect]
     Active Substance: VALGANCICLOVIR
     Indication: Cytomegalovirus infection
     Dosage: UNK
     Route: 065
  6. FOSCARNET [Suspect]
     Active Substance: FOSCARNET
     Indication: Cytomegalovirus infection
     Dosage: UNK
     Route: 042

REACTIONS (7)
  - Drug ineffective [None]
  - Drug resistance [Unknown]
  - Guillain-Barre syndrome [Fatal]
  - Acute motor-sensory axonal neuropathy [Fatal]
  - Neuropathy peripheral [Fatal]
  - Death [Fatal]
  - Off label use [Unknown]
